FAERS Safety Report 9918686 (Version 1)
Quarter: 2014Q1

REPORT INFORMATION
  Report Type: Spontaneous
  Country: US (occurrence: US)
  Receive Date: 20140224
  Receipt Date: 20140224
  Transmission Date: 20141002
  Serious: Yes (Other)
  Sender: FDA-Public Use
  Company Number: US-DRREDDYS-USA/USA/14/0038298

PATIENT
  Sex: Female

DRUGS (1)
  1. MONTELUKAST [Suspect]
     Indication: PRODUCT USED FOR UNKNOWN INDICATION
     Route: 048
     Dates: start: 201312

REACTIONS (3)
  - Asthma [Recovered/Resolved]
  - Muscle spasms [Unknown]
  - Heart rate increased [Recovered/Resolved]
